FAERS Safety Report 4398348-2 (Version None)
Quarter: 2004Q3

REPORT INFORMATION
  Report Type: 
  Country: None (occurrence: None)
  Receive Date: 20040714
  Receipt Date: 20040714
  Transmission Date: 20050211
  Serious: Yes (Hospitalization)
  Sender: FDA-Public Use
  Company Number: None

PATIENT
  Age: 57 Year
  Sex: Male
  Weight: 100.3 kg

DRUGS (12)
  1. ALEVE [Suspect]
     Indication: PAIN
  2. IBUPROFEN [Suspect]
     Indication: PAIN
  3. ASPIRIN [Concomitant]
  4. PLAVIX [Concomitant]
  5. FOLIC ACID [Concomitant]
  6. OXYCODONE HCL [Concomitant]
  7. GLYBURIDE [Concomitant]
  8. DIOVAN [Concomitant]
  9. ATENOLOL [Concomitant]
  10. FISHOIL [Concomitant]
  11. LOVASTATIN [Concomitant]
  12. TRICOR [Concomitant]

REACTIONS (3)
  - GASTRITIS EROSIVE [None]
  - MELAENA [None]
  - RECTAL HAEMORRHAGE [None]
